FAERS Safety Report 6055784-6 (Version None)
Quarter: 2009Q1

REPORT INFORMATION
  Report Type: 
  Country: None (occurrence: None)
  Receive Date: 20090126
  Receipt Date: 20090112
  Transmission Date: 20090719
  Serious: Yes (Death, Hospitalization, Other)
  Sender: FDA-Public Use
  Company Number: 55937

PATIENT
  Age: 53 Year
  Sex: Male

DRUGS (1)
  1. CYCLOSPORINE [Suspect]
     Indication: IMMUNOSUPPRESSION
     Dosage: 140MG DAILY

REACTIONS (14)
  - ASPERGILLOSIS [None]
  - BACTERAEMIA [None]
  - BRAIN ABSCESS [None]
  - BRONCHITIS [None]
  - CARDIAC TAMPONADE [None]
  - CEREBRAL ARTERY EMBOLISM [None]
  - ENDOCARDITIS [None]
  - ENDOPHTHALMITIS [None]
  - MULTI-ORGAN FAILURE [None]
  - NO THERAPEUTIC RESPONSE [None]
  - PERICARDIAL EFFUSION [None]
  - PNEUMONIA BACTERIAL [None]
  - POST PROCEDURAL INFECTION [None]
  - STAPHYLOCOCCAL INFECTION [None]
